FAERS Safety Report 18162084 (Version 1)
Quarter: 2020Q3

REPORT INFORMATION
  Report Type: Report from Study
  Country: CA (occurrence: CA)
  Receive Date: 20200818
  Receipt Date: 20200818
  Transmission Date: 20201103
  Serious: Yes (Other)
  Sender: FDA-Public Use
  Company Number: CA-ACCORD-195714

PATIENT
  Age: 71 Year
  Sex: Male

DRUGS (10)
  1. ROSUVASTATIN. [Suspect]
     Active Substance: ROSUVASTATIN
     Indication: BLOOD CHOLESTEROL ABNORMAL
  2. SUPER PROSTATE FORMULA [Concomitant]
     Indication: NOCTURIA
     Dosage: 1 EVERY 1 DAYS
  3. VALTREX [Suspect]
     Active Substance: VALACYCLOVIR HYDROCHLORIDE
     Indication: MIGRAINE
  4. VALTREX [Suspect]
     Active Substance: VALACYCLOVIR HYDROCHLORIDE
     Indication: MIGRAINE
     Dosage: 2 EVERY 1 DAYS
  5. HYDROCHLOROTHIAZIDE. [Concomitant]
     Active Substance: HYDROCHLOROTHIAZIDE
     Indication: FLUID RETENTION
  6. ROSUVASTATIN. [Suspect]
     Active Substance: ROSUVASTATIN
     Indication: MIGRAINE
     Dosage: 1 EVERY 1 DAYS
  7. NADOLOL. [Concomitant]
     Active Substance: NADOLOL
     Indication: ESSENTIAL TREMOR
  8. AMLODIPINE [Suspect]
     Active Substance: AMLODIPINE BESYLATE
     Indication: BLOOD PRESSURE ABNORMAL
  9. SUMATRIPTAN. [Suspect]
     Active Substance: SUMATRIPTAN
     Indication: MIGRAINE
     Route: 048
  10. AMLODIPINE [Suspect]
     Active Substance: AMLODIPINE BESYLATE
     Indication: MIGRAINE

REACTIONS (3)
  - Photosensitivity reaction [Unknown]
  - Myelopathy [Unknown]
  - Headache [Unknown]
